FAERS Safety Report 12319288 (Version 4)
Quarter: 2016Q2

REPORT INFORMATION
  Report Type: Spontaneous
  Country: BR (occurrence: BR)
  Receive Date: 20160429
  Receipt Date: 20160617
  Transmission Date: 20160815
  Serious: Yes (Life-Threatening, Hospitalization, Other)
  Sender: FDA-Public Use
  Company Number: BR-SA-2016SA084219

PATIENT
  Age: 39 Year
  Sex: Female
  Weight: 58 kg

DRUGS (2)
  1. WARFARIN [Suspect]
     Active Substance: WARFARIN
     Indication: PULMONARY EMBOLISM
     Route: 048
     Dates: start: 20160415, end: 20160416
  2. CLEXANE [Suspect]
     Active Substance: ENOXAPARIN SODIUM
     Indication: PULMONARY EMBOLISM
     Route: 058
     Dates: start: 20160408, end: 20160416

REACTIONS (26)
  - Splenic haemorrhage [Unknown]
  - Pallor [Not Recovered/Not Resolved]
  - Pyrexia [Unknown]
  - Bradycardia [Recovering/Resolving]
  - Dyspnoea [Unknown]
  - Cholecystitis [Unknown]
  - Hypocomplementaemia [Unknown]
  - Renal abscess [Unknown]
  - Shock haemorrhagic [Recovered/Resolved]
  - Peripheral coldness [Recovering/Resolving]
  - Waist circumference increased [Unknown]
  - Pulmonary embolism [Unknown]
  - Proteinuria [Unknown]
  - Hyperhidrosis [Recovering/Resolving]
  - Epigastric discomfort [Unknown]
  - Haemorrhagic ovarian cyst [Unknown]
  - Peritoneal haemorrhage [Unknown]
  - Antiphospholipid syndrome [Unknown]
  - International normalised ratio increased [Recovered/Resolved]
  - Hypotension [Recovering/Resolving]
  - Poor peripheral circulation [Recovering/Resolving]
  - Abdominal pain [Unknown]
  - Blood disorder [Recovered/Resolved]
  - Systemic lupus erythematosus disease activity index increased [Unknown]
  - Intra-abdominal haemorrhage [Unknown]
  - Splenomegaly [Unknown]

NARRATIVE: CASE EVENT DATE: 20160417
